FAERS Safety Report 8998573 (Version 3)
Quarter: 2013Q1

REPORT INFORMATION
  Report Type: Spontaneous
  Country: US (occurrence: US)
  Receive Date: 20130103
  Receipt Date: 20130126
  Transmission Date: 20140127
  Serious: No
  Sender: FDA-Public Use
  Company Number: US-009507513-1212USA011055

PATIENT
  Sex: Male

DRUGS (4)
  1. PEGINTRON [Suspect]
     Indication: HEPATITIS C
     Dosage: UNK
     Route: 058
     Dates: start: 2010
  2. PEGINTRON [Suspect]
     Dosage: UNK, QW
     Route: 058
     Dates: start: 20111123
  3. VICTRELIS [Suspect]
     Indication: HEPATITIS C
     Dosage: 800 MG, TID
     Route: 048
     Dates: start: 20111221
  4. RIBASPHERE [Suspect]
     Indication: HEPATITIS C

REACTIONS (2)
  - Erectile dysfunction [Not Recovered/Not Resolved]
  - Erectile dysfunction [Unknown]
